FAERS Safety Report 10032680 (Version 1)
Quarter: 2014Q1

REPORT INFORMATION
  Report Type: Report from Study
  Country: TH (occurrence: TH)
  Receive Date: 20140324
  Receipt Date: 20140324
  Transmission Date: 20141002
  Serious: Yes (Other)
  Sender: FDA-Public Use
  Company Number: TH-BAYER-2014-042714

PATIENT
  Age: 57 Year
  Sex: Male

DRUGS (13)
  1. MOXIFLOXACIN ORAL [Suspect]
     Indication: TUBERCULOSIS
     Dosage: UNK
  2. ISONIAZID [Concomitant]
     Indication: TUBERCULOSIS
     Dosage: 600 MG / DAY
  3. ISONIAZID [Concomitant]
     Indication: TUBERCULOSIS
     Dosage: 300 MG / DAY
  4. RIFAMPICIN [Concomitant]
     Indication: TUBERCULOSIS
     Dosage: UNK
  5. PZA [Concomitant]
     Indication: TUBERCULOSIS
  6. ETHAMBUTOL [Concomitant]
     Indication: TUBERCULOSIS
  7. STREPTOMYCIN [Concomitant]
     Indication: TUBERCULOSIS
  8. AMIKACIN [Concomitant]
     Indication: TUBERCULOSIS
  9. OFLOXACIN [Concomitant]
     Indication: TUBERCULOSIS
  10. LEVOFLOXACIN [Concomitant]
     Indication: TUBERCULOSIS
  11. ETHIONAMIDE [Concomitant]
     Indication: TUBERCULOSIS
  12. CYCLOSERINE [Concomitant]
     Indication: TUBERCULOSIS
  13. AMINOSALICYLIC ACID [Concomitant]
     Indication: TUBERCULOSIS

REACTIONS (2)
  - Pathogen resistance [None]
  - Drug ineffective for unapproved indication [None]
